FAERS Safety Report 8503268-5 (Version None)
Quarter: 2012Q3

REPORT INFORMATION
  Report Type: 
  Country: None (occurrence: None)
  Receive Date: 20120711
  Receipt Date: 20120705
  Transmission Date: 20120928
  Serious: Yes (Other)
  Sender: FDA-Public Use
  Company Number: CN-ASTRAZENECA-2012SE45469

PATIENT
  Age: 67 Year
  Sex: Female

DRUGS (6)
  1. BISMUTH POTASSIUM CITRATE [Concomitant]
     Indication: GASTROOESOPHAGEAL REFLUX DISEASE
     Route: 048
     Dates: start: 20120601
  2. BISMUTH POTASSIUM CITRATE [Concomitant]
     Indication: DYSPEPSIA
     Route: 048
     Dates: start: 20120601
  3. BISMUTH POTASSIUM CITRATE [Concomitant]
     Indication: HYPERCHLORHYDRIA
     Route: 048
     Dates: start: 20120601
  4. OMEPRAZOLE MAGNESIUM [Suspect]
     Indication: GASTRIC ULCER
     Route: 048
     Dates: start: 20120614
  5. BISMUTH POTASSIUM CITRATE [Concomitant]
     Indication: GASTRITIS
     Route: 048
     Dates: start: 20120601
  6. BISMUTH POTASSIUM CITRATE [Concomitant]
     Indication: ABDOMINAL PAIN UPPER
     Route: 048
     Dates: start: 20120601

REACTIONS (2)
  - SOMNOLENCE [None]
  - MELAENA [None]
